FAERS Safety Report 19255987 (Version 2)
Quarter: 2021Q2

REPORT INFORMATION
  Report Type: Report from Study
  Country: CA (occurrence: CA)
  Receive Date: 20210513
  Receipt Date: 20210622
  Transmission Date: 20210717
  Serious: Yes (Death, Hospitalization, Other)
  Sender: FDA-Public Use
  Company Number: CA-TAKEDA-2021TUS007973

PATIENT
  Age: 69 Year
  Sex: Female

DRUGS (23)
  1. VITAMIN D3 [Concomitant]
     Active Substance: CHOLECALCIFEROL
     Dosage: 25 MILLIGRAM
  2. Q10 [Concomitant]
     Active Substance: DIETARY SUPPLEMENT\UBIDECARENONE
     Dosage: 100 MILLIGRAM
  3. COPPER [Concomitant]
     Active Substance: COPPER
     Dosage: 930 MILLIGRAM
  4. VITAMIN K [Concomitant]
     Active Substance: PHYTONADIONE
     Dosage: 85 MILLIGRAM
  5. ASTRAGALUS [ASTRAGALUS PROPINQUUS] [Concomitant]
     Dosage: UNK
  6. ZINC. [Concomitant]
     Active Substance: ZINC
     Dosage: UNK
  7. MILK THISTLE [SILYBUM MARIANUM] [Concomitant]
     Active Substance: DIETARY SUPPLEMENT\HERBALS\MILK THISTLE
     Dosage: UNK
  8. TURMERIC [CURCUMA LONGA RHIZOME] [Concomitant]
     Active Substance: HERBALS\TURMERIC
     Dosage: UNK
  9. VITAMIN B1 [Concomitant]
     Active Substance: THIAMINE HYDROCHLORIDE
     Dosage: 4.65 MILLIGRAM
  10. FOLATE [Concomitant]
     Active Substance: FOLATE SODIUM
     Dosage: 500 MILLIGRAM
  11. VITAMIN B12 [Concomitant]
     Active Substance: CYANOCOBALAMIN
     Dosage: 150 MILLIGRAM
  12. REISHI [GANODERMA LUCIDUM] [Concomitant]
     Dosage: UNK
  13. REVLIMID [Concomitant]
     Active Substance: LENALIDOMIDE
  14. DEXAMETHASONE. [Concomitant]
     Active Substance: DEXAMETHASONE
  15. GLUCOSAMINE [ASCORBIC ACID;GLUCOSAMINE SULFATE] [Concomitant]
     Dosage: 186 MILLIGRAM
  16. MAGNESIUM [Concomitant]
     Active Substance: MAGNESIUM
     Dosage: 145 MILLIGRAM
  17. TEA, GREEN [Concomitant]
     Active Substance: GREEN TEA LEAF
     Dosage: UNK
  18. IXAZOMIB [Suspect]
     Active Substance: IXAZOMIB
     Indication: PLASMA CELL MYELOMA
     Dosage: 4 MILLIGRAM
     Route: 048
     Dates: start: 20201219
  19. CURCUMIN [Concomitant]
     Active Substance: CURCUMIN
     Dosage: 9.3 MILLIGRAM
  20. VITAMIN K2 [MENAQUINONE] [Concomitant]
     Active Substance: MENAQUINONE 6
     Dosage: 10 MILLIGRAM
  21. SELENIUM [SELENOMETHIONINE] [Concomitant]
     Dosage: 200 MILLIGRAM
  22. LYCOPENE [Concomitant]
     Active Substance: LYCOPENE
     Dosage: UNK
  23. MANGANESE [Concomitant]
     Active Substance: MANGANESE CHLORIDE
     Dosage: 2.79 MILLIGRAM

REACTIONS (10)
  - COVID-19 [Unknown]
  - Asthenia [Unknown]
  - Haemoglobin decreased [Unknown]
  - Dizziness [Unknown]
  - Nausea [Unknown]
  - Vomiting [Unknown]
  - Death [Fatal]
  - Malaise [Recovered/Resolved]
  - Fatigue [Unknown]
  - Memory impairment [Unknown]
